FAERS Safety Report 7743585-X (Version None)
Quarter: 2011Q3

REPORT INFORMATION
  Report Type: 
  Country: None (occurrence: None)
  Receive Date: 20110819
  Receipt Date: 20110610
  Transmission Date: 20111222
  Serious: No
  Sender: FDA-Public Use
  Company Number: 035197

PATIENT
  Age: 17 Year
  Sex: Male

DRUGS (2)
  1. LACOSAMIDE [Suspect]
     Dosage: 400 MG BID
  2. TOPAMAX [Concomitant]

REACTIONS (1)
  - OPIATES POSITIVE [None]
